FAERS Safety Report 8554723-3 (Version None)
Quarter: 2012Q3

REPORT INFORMATION
  Report Type: 
  Country: None (occurrence: None)
  Receive Date: 20120731
  Receipt Date: 20120716
  Transmission Date: 20120928
  Serious: Yes (Other)
  Sender: FDA-Public Use
  Company Number: CHPA2012US015778

PATIENT
  Age: 67 Year
  Sex: Female

DRUGS (4)
  1. MAALOX MAX ANTACID+ANTIGAS [Suspect]
     Indication: GASTROOESOPHAGEAL REFLUX DISEASE
     Dosage: 3 DF, UNK
     Route: 048
     Dates: start: 20120601
  2. MYLANTA                                 /USA/ [Concomitant]
     Dosage: UNK, UNK
  3. MAALOX ADV MAXIMUM STRENGTH ANTACID/ANTIGAS [Suspect]
     Indication: GASTROOESOPHAGEAL REFLUX DISEASE
     Dosage: UNK, UNK
     Route: 048
  4. ZANTAC [Concomitant]
     Dosage: UNK, UNK

REACTIONS (2)
  - HYPERTENSION [None]
  - OFF LABEL USE [None]
